FAERS Safety Report 10101699 (Version 1)
Quarter: 2014Q2

REPORT INFORMATION
  Report Type: Spontaneous
  Country: US (occurrence: None)
  Receive Date: 20140423
  Receipt Date: 20140423
  Transmission Date: 20141212
  Serious: Yes (Hospitalization, Disabling)
  Sender: FDA-Public Use
  Company Number: None

PATIENT
  Age: 52 Year
  Sex: Female
  Weight: 56.7 kg

DRUGS (1)
  1. CIPROFLOXACIN CIPROFLOXACIN 500MG [Suspect]
     Indication: URINARY TRACT INFECTION
     Dosage: 500MG TWICE DAILY TAKEN BY MOUTH
     Route: 048
     Dates: start: 20100217, end: 20100226

REACTIONS (5)
  - Myalgia [None]
  - Neuralgia [None]
  - Allodynia [None]
  - Insomnia [None]
  - Fatigue [None]
